FAERS Safety Report 17879829 (Version 1)
Quarter: 2020Q2

REPORT INFORMATION
  Report Type: Spontaneous
  Country: US (occurrence: US)
  Receive Date: 20200610
  Receipt Date: 20200610
  Transmission Date: 20200714
  Serious: Yes (Disabling)
  Sender: FDA-Public Use
  Company Number: None

PATIENT
  Age: 66 Year
  Sex: Female
  Weight: 80.55 kg

DRUGS (3)
  1. MULTIVITAMIN [Concomitant]
     Active Substance: VITAMINS
  2. NP THYROID [Suspect]
     Active Substance: LEVOTHYROXINE\LIOTHYRONINE
     Indication: HYPOTHYROIDISM
     Dosage: ?          QUANTITY:1 TABLET(S);?
     Route: 048
  3. ELIQUIS [Concomitant]
     Active Substance: APIXABAN

REACTIONS (10)
  - Hypertension [None]
  - Product measured potency issue [None]
  - Atrial fibrillation [None]
  - Procedural failure [None]
  - Recalled product administered [None]
  - Fatigue [None]
  - Muscular weakness [None]
  - Heart rate increased [None]
  - Chest pain [None]
  - Temperature intolerance [None]

NARRATIVE: CASE EVENT DATE: 20200411
